FAERS Safety Report 6693598-4 (Version None)
Quarter: 2010Q2

REPORT INFORMATION
  Report Type: 
  Country: None (occurrence: None)
  Receive Date: 20100423
  Receipt Date: 20100415
  Transmission Date: 20101027
  Serious: No
  Sender: FDA-Public Use
  Company Number: 2009BI033015

PATIENT
  Age: 57 Year
  Sex: Female

DRUGS (1)
  1. TYSABRI [Suspect]
     Indication: MULTIPLE SCLEROSIS
     Route: 042
     Dates: start: 20080222

REACTIONS (5)
  - BACK PAIN [None]
  - COGNITIVE DISORDER [None]
  - FATIGUE [None]
  - MUSCLE SPASMS [None]
  - STRESS [None]
